FAERS Safety Report 15789299 (Version 2)
Quarter: 2019Q1

REPORT INFORMATION
  Report Type: Spontaneous
  Country: US (occurrence: US)
  Receive Date: 20190104
  Receipt Date: 20190129
  Transmission Date: 20190417
  Serious: No
  Sender: FDA-Public Use
  Company Number: US-ASTRAZENECA-2018SF61462

PATIENT
  Age: 17746 Day
  Sex: Female
  Weight: 104.3 kg

DRUGS (3)
  1. PULMICORT FLEXHALER [Suspect]
     Active Substance: BUDESONIDE
     Indication: ASTHMA
     Dosage: 180MCG 2 PUFFS TWICE A DAY
     Route: 055
     Dates: start: 2017
  2. ALBUTEROL SULFATE. [Concomitant]
     Active Substance: ALBUTEROL SULFATE
     Indication: ASTHMA
     Dosage: AS REQUIRED
     Route: 055
  3. SYMBICORT [Suspect]
     Active Substance: BUDESONIDE\FORMOTEROL FUMARATE DIHYDRATE
     Indication: ASTHMA
     Dosage: 160/4.5MCG 1 PUFF TWICE A DAY
     Route: 055
     Dates: start: 2017

REACTIONS (13)
  - Malaise [Unknown]
  - Wrong technique in device usage process [Unknown]
  - Product dose omission [Unknown]
  - Intentional product misuse [Unknown]
  - Dyspnoea [Unknown]
  - Aphonia [Unknown]
  - Urticaria [Unknown]
  - Circumstance or information capable of leading to medication error [Unknown]
  - Bronchitis [Unknown]
  - Off label use [Not Recovered/Not Resolved]
  - Viral infection [Unknown]
  - Device issue [Unknown]
  - Device failure [Unknown]

NARRATIVE: CASE EVENT DATE: 201810
